FAERS Safety Report 8342344-7 (Version None)
Quarter: 2012Q2

REPORT INFORMATION
  Report Type: 
  Country: None (occurrence: None)
  Receive Date: 20120508
  Receipt Date: 20120425
  Transmission Date: 20120825
  Serious: Yes (Disabling, Other)
  Sender: FDA-Public Use
  Company Number: FI-AMGEN-FINSP2012027175

PATIENT
  Age: 55 Year
  Sex: Female

DRUGS (4)
  1. REMICADE [Suspect]
     Indication: PSORIATIC ARTHROPATHY
     Dosage: UNK
  2. PREDNISOLONE [Concomitant]
     Indication: PSORIATIC ARTHROPATHY
     Dosage: 5 MG, 1X/DAY
     Route: 048
     Dates: start: 20090101
  3. ENBREL [Suspect]
     Indication: PSORIATIC ARTHROPATHY
     Dosage: 50 MG, WEEKLY
     Route: 058
     Dates: start: 20111027, end: 20120209
  4. REMICADE [Suspect]
     Indication: PSORIASIS
     Dosage: 500 MG
     Route: 042
     Dates: start: 20120214, end: 20120228

REACTIONS (3)
  - CONDITION AGGRAVATED [None]
  - MUSCULAR WEAKNESS [None]
  - GAIT DISTURBANCE [None]
